FAERS Safety Report 10021566 (Version 1)
Quarter: 2014Q1

REPORT INFORMATION
  Report Type: Spontaneous
  Country: FI (occurrence: FI)
  Receive Date: 20140319
  Receipt Date: 20140319
  Transmission Date: 20141002
  Serious: Yes (Hospitalization)
  Sender: FDA-Public Use
  Company Number: FI-SA-2014SA030194

PATIENT
  Age: 29 Year
  Sex: Female

DRUGS (1)
  1. ALEMTUZUMAB [Suspect]
     Indication: PRODUCT USED FOR UNKNOWN INDICATION
     Dosage: 12 MG FOR 5 DAYS, ALTOGETHER 60 MG
     Route: 042
     Dates: start: 20140303, end: 20140308

REACTIONS (2)
  - Bradycardia [Recovered/Resolved]
  - Urticaria [Recovered/Resolved]
